FAERS Safety Report 24283653 (Version 3)
Quarter: 2024Q4

REPORT INFORMATION
  Report Type: Spontaneous
  Country: US (occurrence: US)
  Receive Date: 20240904
  Receipt Date: 20241021
  Transmission Date: 20250114
  Serious: No
  Sender: BOEHRINGER INGELHEIM
  Company Number: US-Komodo Health-a23aa000002wlkaAAA

PATIENT
  Sex: Male

DRUGS (1)
  1. COMBIVENT RESPIMAT [Suspect]
     Active Substance: ALBUTEROL SULFATE\IPRATROPIUM BROMIDE
     Indication: Bronchitis chronic
     Dosage: 1 PUFF INHALATION
     Route: 055
     Dates: start: 2009

REACTIONS (2)
  - Chest pain [Not Recovered/Not Resolved]
  - Product physical issue [Unknown]
